FAERS Safety Report 14493170 (Version 1)
Quarter: 2018Q1

REPORT INFORMATION
  Report Type: Spontaneous
  Country: US (occurrence: US)
  Receive Date: 20180205
  Receipt Date: 20180205
  Transmission Date: 20180509
  Serious: Yes (Disabling)
  Sender: FDA-Public Use
  Company Number: None

PATIENT
  Age: 37 Year
  Sex: Female
  Weight: 74.25 kg

DRUGS (2)
  1. LETROZOLE. [Suspect]
     Active Substance: LETROZOLE
     Indication: BREAST CANCER METASTATIC
     Dates: start: 20170919, end: 20180204
  2. MIRENA [Concomitant]
     Active Substance: LEVONORGESTREL

REACTIONS (8)
  - Metrorrhagia [None]
  - Cognitive disorder [None]
  - Feeling abnormal [None]
  - Acne [None]
  - Exposure via partner [None]
  - Breast tenderness [None]
  - Arthralgia [None]
  - Anaemia [None]

NARRATIVE: CASE EVENT DATE: 20180201
